FAERS Safety Report 20623216 (Version 5)
Quarter: 2022Q3

REPORT INFORMATION
  Report Type: Spontaneous
  Country: US (occurrence: US)
  Receive Date: 20220322
  Receipt Date: 20220701
  Transmission Date: 20221027
  Serious: Yes (Disabling, Other)
  Sender: FDA-Public Use
  Company Number: US-REGENERON PHARMACEUTICALS, INC.-2022-39820

PATIENT
  Sex: Male

DRUGS (2)
  1. EYLEA [Suspect]
     Active Substance: AFLIBERCEPT
     Indication: Choroidal neovascularisation
     Dosage: UNK, RIGHT EYE (FORMULATION: VIAL)
  2. EYLEA [Suspect]
     Active Substance: AFLIBERCEPT
     Dosage: UNK, LEFT EYE (FORMULATION: VIAL)
     Dates: start: 20180502, end: 20180502

REACTIONS (5)
  - Blindness unilateral [Not Recovered/Not Resolved]
  - Hypopyon [Unknown]
  - Endophthalmitis [Recovered/Resolved]
  - Cataract [Unknown]
  - Vitrectomy [Recovered/Resolved]

NARRATIVE: CASE EVENT DATE: 20180101
